FAERS Safety Report 11188743 (Version 1)
Quarter: 2015Q2

REPORT INFORMATION
  Report Type: Spontaneous
  Country: US (occurrence: None)
  Receive Date: 20150611
  Receipt Date: 20150611
  Transmission Date: 20150821
  Serious: Yes (Other)
  Sender: FDA-Public Use
  Company Number: 2015-11496

PATIENT
  Age: 73 Year
  Sex: Male

DRUGS (3)
  1. ATENOLOL. [Concomitant]
     Active Substance: ATENOLOL
  2. EYLEA [Suspect]
     Active Substance: AFLIBERCEPT
     Indication: NEOVASCULAR AGE-RELATED MACULAR DEGENERATION
     Dosage: 2 MG MILLIGRAM(S), OD, UNK
     Dates: start: 201303, end: 201403
  3. NORTRIPTYLINE [Concomitant]
     Active Substance: NORTRIPTYLINE

REACTIONS (3)
  - Hypersensitivity [None]
  - Vitrectomy [None]
  - Non-infectious endophthalmitis [None]

NARRATIVE: CASE EVENT DATE: 201403
